FAERS Safety Report 11054400 (Version 1)
Quarter: 2015Q2

REPORT INFORMATION
  Report Type: Spontaneous
  Country: CA (occurrence: None)
  Receive Date: 20150421
  Receipt Date: 20150421
  Transmission Date: 20150821
  Serious: Yes (Death, Life-Threatening, Hospitalization, Disabling, Other)
  Sender: FDA-Public Use
  Company Number: None

PATIENT
  Age: 93 Year
  Sex: Female
  Weight: 65.77 kg

DRUGS (7)
  1. VITAMIN B12 [Concomitant]
     Active Substance: CYANOCOBALAMIN
  2. COD LIVER OIL [Concomitant]
     Active Substance: COD LIVER OIL
  3. RAMPRIL [Concomitant]
  4. VIT.D [Concomitant]
  5. TYLENOL [Concomitant]
     Active Substance: ACETAMINOPHEN
  6. MAGNESIUM [Concomitant]
     Active Substance: MAGNESIUM
  7. RISPERDAL [Suspect]
     Active Substance: RISPERIDONE
     Indication: AGGRESSION
     Dosage: AM + BEDTIME BY MOUTH
     Route: 048
     Dates: start: 201311, end: 20150116

REACTIONS (11)
  - Hallucination [None]
  - Activities of daily living impaired [None]
  - Cognitive disorder [None]
  - Condition aggravated [None]
  - Mobility decreased [None]
  - Delusion [None]
  - Reading disorder [None]
  - Balance disorder [None]
  - Gait disturbance [None]
  - Muscular weakness [None]
  - Fall [None]

NARRATIVE: CASE EVENT DATE: 20150116
